FAERS Safety Report 17359366 (Version 2)
Quarter: 2020Q1

REPORT INFORMATION
  Report Type: Report from Study
  Country: None (occurrence: US)
  Receive Date: 20200203
  Receipt Date: 20200311
  Transmission Date: 20200409
  Serious: Yes (Hospitalization, Other)
  Sender: FDA-Public Use
  Company Number: US-ABBVIE-20K-163-3258347-00

PATIENT
  Sex: Female

DRUGS (2)
  1. HUMIRA [Suspect]
     Active Substance: ADALIMUMAB
     Route: 058
  2. HUMIRA [Suspect]
     Active Substance: ADALIMUMAB
     Indication: CROHN^S DISEASE
     Route: 058

REACTIONS (8)
  - Heart rate irregular [Unknown]
  - Aortic occlusion [Unknown]
  - Hypoaesthesia [Unknown]
  - Palpitations [Unknown]
  - Crohn^s disease [Unknown]
  - Gastrointestinal pain [Unknown]
  - Intestinal stenosis [Unknown]
  - Heart rate increased [Unknown]
